FAERS Safety Report 11449249 (Version 4)
Quarter: 2016Q1

REPORT INFORMATION
  Report Type: Report from Study
  Country: AR (occurrence: AR)
  Receive Date: 20150902
  Receipt Date: 20160205
  Transmission Date: 20160525
  Serious: Yes (Hospitalization, Other)
  Sender: FDA-Public Use
  Company Number: AR-BIOMARINAP-AR-2015-107284

PATIENT
  Age: 14 Year
  Sex: Female
  Weight: 15 kg

DRUGS (1)
  1. ALDURAZYME [Suspect]
     Active Substance: LARONIDASE
     Indication: MUCOPOLYSACCHARIDOSIS I
     Dosage: 0.58 MG/KG, QW
     Route: 041
     Dates: start: 2006, end: 20150803

REACTIONS (10)
  - Haematemesis [Unknown]
  - Upper gastrointestinal haemorrhage [Recovered/Resolved]
  - Surgery [Recovering/Resolving]
  - Pyrexia [Not Recovered/Not Resolved]
  - Malnutrition [Unknown]
  - Septic shock [Not Recovered/Not Resolved]
  - Seizure [Unknown]
  - Hypovolaemic shock [Recovered/Resolved]
  - Device related infection [Unknown]
  - Increased upper airway secretion [Unknown]
